FAERS Safety Report 10591962 (Version 2)
Quarter: 2014Q4

REPORT INFORMATION
  Report Type: Spontaneous
  Country: GB (occurrence: GB)
  Receive Date: 20141119
  Receipt Date: 20141203
  Transmission Date: 20150529
  Serious: Yes (Life-Threatening, Hospitalization, Other)
  Sender: FDA-Public Use
  Company Number: GB-AUROBINDO-AUR-APL-2014-11938

PATIENT
  Age: 68 Year
  Sex: Female
  Weight: 57.2 kg

DRUGS (16)
  1. CODEINE [Concomitant]
     Active Substance: CODEINE
     Indication: PRODUCT USED FOR UNKNOWN INDICATION
     Dosage: 30 MG, AS NECESSARY
     Route: 065
     Dates: start: 20140930
  2. DOMPERIDONE [Concomitant]
     Active Substance: DOMPERIDONE
     Indication: NAUSEA
     Dosage: 10 MG, 3 TIMES A DAY
     Route: 065
     Dates: start: 20140928
  3. DOCETAXEL. [Concomitant]
     Active Substance: DOCETAXEL
     Indication: BREAST CANCER
     Dosage: UNK, CYCLICAL
     Route: 065
     Dates: start: 20140923
  4. PEGFILGRASTIM [Concomitant]
     Active Substance: PEGFILGRASTIM
     Indication: BREAST CANCER
     Dosage: 6 MG, TOTAL
     Route: 065
     Dates: start: 20140924
  5. DALTEPARIN [Concomitant]
     Active Substance: DALTEPARIN
     Indication: PROPHYLAXIS
     Dosage: UNK
     Route: 065
     Dates: start: 20140928
  6. CO-AMOXICLAV                       /00756801/ [Concomitant]
     Active Substance: AMOXICILLIN\CLAVULANIC ACID
     Indication: PYREXIA
     Dosage: 625 MG, 3 TIMES A DAY
     Route: 048
     Dates: start: 20140928
  7. CIPROFLOXACIN. [Suspect]
     Active Substance: CIPROFLOXACIN
     Indication: PYREXIA
     Dosage: 500 MG, TWO TIMES A DAY
     Route: 048
     Dates: start: 20140929, end: 20141004
  8. CYCLOPHOSPHAMIDE. [Concomitant]
     Active Substance: CYCLOPHOSPHAMIDE
     Indication: BREAST CANCER
     Dosage: UNK
     Route: 065
     Dates: start: 201407, end: 201408
  9. HEPARIN [Concomitant]
     Active Substance: HEPARIN SODIUM
     Indication: THROMBOSIS PROPHYLAXIS
     Dosage: 5000 IU, TWO TIMES A DAY
     Route: 065
  10. MACROGOL [Concomitant]
     Active Substance: POLYETHYLENE GLYCOLS
     Indication: PRODUCT USED FOR UNKNOWN INDICATION
     Dosage: UNK, AS NECESSARY
     Route: 065
  11. TAZOCIN [Concomitant]
     Active Substance: PIPERACILLIN SODIUM\TAZOBACTAM SODIUM
     Indication: PYREXIA
     Dosage: 4.5 G, TOTAL
     Route: 065
     Dates: start: 20140928
  12. DEXAMETHASONE. [Concomitant]
     Active Substance: DEXAMETHASONE
     Indication: CHEMOTHERAPY
     Dosage: UNK
     Route: 065
  13. EPIRUBICIN [Concomitant]
     Active Substance: EPIRUBICIN
     Indication: BREAST CANCER
     Dosage: UNK
     Route: 065
     Dates: start: 201407, end: 201408
  14. GRANISETRON [Concomitant]
     Active Substance: GRANISETRON
     Indication: CHEMOTHERAPY
     Dosage: UNK
     Route: 065
  15. HYDROCORTISONE. [Concomitant]
     Active Substance: HYDROCORTISONE
     Indication: RASH MACULAR
     Dosage: UNK
     Route: 065
     Dates: start: 20140930
  16. FLUORURACILA                       /00098801/ [Concomitant]
     Indication: BREAST CANCER
     Dosage: UNK
     Route: 065
     Dates: start: 201407, end: 201408

REACTIONS (4)
  - Diarrhoea [Unknown]
  - Acute kidney injury [Not Recovered/Not Resolved]
  - Vomiting [Unknown]
  - Nausea [Unknown]

NARRATIVE: CASE EVENT DATE: 201409
